FAERS Safety Report 21846336 (Version 3)
Quarter: 2023Q2

REPORT INFORMATION
  Report Type: Spontaneous
  Country: GR (occurrence: GR)
  Receive Date: 20230111
  Receipt Date: 20230410
  Transmission Date: 20230722
  Serious: Yes (Disabling, Other)
  Sender: FDA-Public Use
  Company Number: GR-002147023-NVSC2023GR002425

PATIENT
  Age: 63 Year
  Sex: Female

DRUGS (2)
  1. LUCENTIS [Suspect]
     Active Substance: RANIBIZUMAB
     Indication: Macular degeneration
     Dosage: UNK
     Route: 065
     Dates: start: 202101
  2. AVASTIN [Concomitant]
     Active Substance: BEVACIZUMAB
     Indication: Eye lubrication therapy
     Dosage: UNK
     Dates: start: 202005

REACTIONS (9)
  - Osteoarthritis [Recovering/Resolving]
  - Optic nerve disorder [Unknown]
  - Intraocular pressure increased [Unknown]
  - Blood cholesterol increased [Unknown]
  - Peripheral swelling [Unknown]
  - Bone lesion [Unknown]
  - Arthropathy [Unknown]
  - Transaminases increased [Unknown]
  - Drug ineffective [Unknown]

NARRATIVE: CASE EVENT DATE: 20210301
